FAERS Safety Report 4791810-X (Version None)
Quarter: 2005Q4

REPORT INFORMATION
  Report Type: 
  Country: None (occurrence: None)
  Receive Date: 20051005
  Receipt Date: 20050923
  Transmission Date: 20060501
  Serious: Yes (Hospitalization)
  Sender: FDA-Public Use
  Company Number: A-CH2005-10151

PATIENT
  Age: 68 Year
  Sex: Female

DRUGS (14)
  1. TRACLEER [Suspect]
     Indication: PULMONARY HYPERTENSION
     Dosage: SEE IMAGE, ORAL
     Route: 048
     Dates: start: 20050201, end: 20050301
  2. TRACLEER [Suspect]
     Indication: PULMONARY HYPERTENSION
     Dosage: SEE IMAGE, ORAL
     Route: 048
     Dates: start: 20050301
  3. NEXIUM [Concomitant]
  4. UDC (URSODEOXYCHOLIC ACID) [Concomitant]
  5. PREDNISONE [Concomitant]
  6. CALCILAC [Concomitant]
  7. ACTONEL [Concomitant]
  8. SPIRIVA [Concomitant]
  9. BISO ABZ [Concomitant]
  10. MAGENSIUM (MAGNESIUM CARBONATE) [Concomitant]
  11. THYROXIN (LEVOTHYROXINE SODIUM) [Concomitant]
  12. ALLOPURINOL [Concomitant]
  13. INNOHEP [Concomitant]
  14. TORSEMIDE [Concomitant]

REACTIONS (10)
  - AUTOIMMUNE DISORDER [None]
  - BLISTER [None]
  - DERMATOSIS [None]
  - EPIDERMOLYSIS BULLOSA [None]
  - PEMPHIGOID [None]
  - PRURITUS [None]
  - RASH [None]
  - SCRATCH [None]
  - SLEEP DISORDER [None]
  - SYSTEMIC LUPUS ERYTHEMATOSUS [None]
